FAERS Safety Report 24671057 (Version 1)
Quarter: 2024Q4

REPORT INFORMATION
  Report Type: Spontaneous
  Country: US (occurrence: None)
  Receive Date: 20241127
  Receipt Date: 20241127
  Transmission Date: 20250114
  Serious: Yes (Hospitalization)
  Sender: Public
  Company Number: None

PATIENT
  Sex: Female

DRUGS (11)
  1. TOBRAMYCIN [Suspect]
     Active Substance: TOBRAMYCIN\TOBRAMYCIN SULFATE
     Indication: Interstitial lung disease
     Dosage: FREQ: INHALE 5 MLS VIA NEBULIZER TWICE DAILY FOR 28 DAYS ON AND 28 DAYS OFF THEN REPEAT?
     Dates: start: 20240817
  2. ADVAIR DISKUS [Concomitant]
     Active Substance: FLUTICASONE PROPIONATE\SALMETEROL XINAFOATE
  3. CALCIUM CIT TAB 200MG [Concomitant]
  4. COMBIVENT [Concomitant]
     Active Substance: ALBUTEROL SULFATE\IPRATROPIUM BROMIDE
  5. FOSAMAX [Concomitant]
     Active Substance: ALENDRONATE SODIUM
  6. GABAPENTIN [Concomitant]
     Active Substance: GABAPENTIN
  7. A-HYDROCORT [Concomitant]
     Active Substance: HYDROCORTISONE SODIUM SUCCINATE
  8. IMURAN [Concomitant]
     Active Substance: AZATHIOPRINE
  9. JARDIANCE [Concomitant]
     Active Substance: EMPAGLIFLOZIN
  10. LEVOFLOXACIN [Concomitant]
     Active Substance: LEVOFLOXACIN
  11. OFEV [Concomitant]
     Active Substance: NINTEDANIB

REACTIONS (5)
  - Fatigue [None]
  - Back pain [None]
  - Loss of personal independence in daily activities [None]
  - Insomnia [None]
  - Seasonal allergy [None]
